FAERS Safety Report 8481730-1 (Version None)
Quarter: 2012Q3

REPORT INFORMATION
  Report Type: 
  Country: None (occurrence: None)
  Receive Date: 20120702
  Receipt Date: 20120618
  Transmission Date: 20120928
  Serious: Yes (Other)
  Sender: FDA-Public Use
  Company Number: US-ROCHE-1081285

PATIENT

DRUGS (1)
  1. AVASTIN [Suspect]
     Indication: COLORECTAL CANCER
     Route: 042

REACTIONS (4)
  - PULMONARY EMBOLISM [None]
  - RENAL FAILURE ACUTE [None]
  - MYOCARDIAL ISCHAEMIA [None]
  - CARDIAC FAILURE CONGESTIVE [None]
